FAERS Safety Report 7029067-1 (Version None)
Quarter: 2010Q4

REPORT INFORMATION
  Report Type: 
  Country: None (occurrence: None)
  Receive Date: 20101005
  Receipt Date: 20100930
  Transmission Date: 20110411
  Serious: Yes (Death, Hospitalization)
  Sender: FDA-Public Use
  Company Number: A0884851A

PATIENT
  Sex: Female
  Weight: 68 kg

DRUGS (2)
  1. SERETIDE [Suspect]
     Indication: CHRONIC OBSTRUCTIVE PULMONARY DISEASE
     Dosage: 2PUFF TWICE PER DAY
     Route: 055
     Dates: start: 20080401, end: 20100701
  2. ANTIHYPERTENSIVES [Concomitant]

REACTIONS (4)
  - CONDITION AGGRAVATED [None]
  - LUNG NEOPLASM MALIGNANT [None]
  - OVERDOSE [None]
  - RENAL CANCER [None]
